FAERS Safety Report 15530214 (Version 1)
Quarter: 2018Q4

REPORT INFORMATION
  Report Type: Spontaneous
  Country: AR (occurrence: AR)
  Receive Date: 20181018
  Receipt Date: 20181018
  Transmission Date: 20190205
  Serious: Yes (Other)
  Sender: FDA-Public Use
  Company Number: AR-PFIZER INC-2018420504

PATIENT
  Age: 65 Year
  Sex: Male

DRUGS (2)
  1. VFEND [Interacting]
     Active Substance: VORICONAZOLE
     Dosage: UNK
  2. INLYTA [Suspect]
     Active Substance: AXITINIB
     Indication: RENAL CANCER
     Dosage: 10 MG, DAILY
     Dates: start: 20180629

REACTIONS (3)
  - Decreased immune responsiveness [Unknown]
  - Pulmonary mycosis [Unknown]
  - Potentiating drug interaction [Unknown]
